FAERS Safety Report 12242479 (Version 1)
Quarter: 2016Q2

REPORT INFORMATION
  Report Type: Spontaneous
  Country: US (occurrence: US)
  Receive Date: 20160406
  Receipt Date: 20160406
  Transmission Date: 20160815
  Serious: Yes (Other)
  Sender: FDA-Public Use
  Company Number: PHEH2016US007909

PATIENT
  Age: 58 Year
  Sex: Male

DRUGS (1)
  1. VOTRIENT [Suspect]
     Active Substance: PAZOPANIB HYDROCHLORIDE
     Indication: PRODUCT USED FOR UNKNOWN INDICATION
     Dosage: 800 MG, QD
     Route: 048
     Dates: start: 20160101

REACTIONS (9)
  - Bone pain [Unknown]
  - Fatigue [Unknown]
  - Disturbance in attention [Unknown]
  - Hair colour changes [Unknown]
  - Skin discolouration [Unknown]
  - Myalgia [Unknown]
  - Dry skin [Unknown]
  - Dysgeusia [Unknown]
  - Tongue blistering [Unknown]

NARRATIVE: CASE EVENT DATE: 20160101
